FAERS Safety Report 21713981 (Version 1)
Quarter: 2022Q4

REPORT INFORMATION
  Report Type: Spontaneous
  Country: AU (occurrence: AU)
  Receive Date: 20221212
  Receipt Date: 20221212
  Transmission Date: 20230113
  Serious: Yes (Other)
  Sender: FDA-Public Use
  Company Number: AU-AQUESTIVE THERAPEUTICS, INC.-2022AQU00116

PATIENT
  Age: 20 Year
  Sex: Female

DRUGS (5)
  1. ONDANSETRON [Suspect]
     Active Substance: ONDANSETRON
     Indication: Hyperemesis gravidarum
     Dosage: 24 MG, 1X/DAY
     Route: 065
  2. PROCHLORPERAZINE [Suspect]
     Active Substance: PROCHLORPERAZINE
     Indication: Hyperemesis gravidarum
     Dosage: 12.5 MG, 2 DOSES ADMINISTERED 12 HOURS APART
     Route: 042
  3. METOCLOPRAMIDE [Suspect]
     Active Substance: METOCLOPRAMIDE
     Indication: Hyperemesis gravidarum
     Dosage: 30 MG, 1X/DAY
     Route: 065
  4. PYRIDOXINE-DOXYLAMINE [Concomitant]
     Indication: Hyperemesis gravidarum
     Dosage: 50-50 MG DAILY
     Route: 065
  5. OMEPRAZOLE [Concomitant]
     Active Substance: OMEPRAZOLE
     Indication: Hyperemesis gravidarum
     Dosage: 20 MG, 1X/DAY
     Route: 065

REACTIONS (2)
  - Akathisia [Recovered/Resolved]
  - Oculogyric crisis [Recovered/Resolved]
